FAERS Safety Report 8303989-3 (Version None)
Quarter: 2012Q2

REPORT INFORMATION
  Report Type: 
  Country: None (occurrence: None)
  Receive Date: 20120418
  Receipt Date: 20120123
  Transmission Date: 20120825
  Serious: No
  Sender: FDA-Public Use
  Company Number: AEUSA201200030

PATIENT

DRUGS (1)
  1. GAMASTAN [Suspect]
     Indication: INFECTION PROPHYLAXIS
     Dosage: IM
     Route: 030

REACTIONS (2)
  - CIRCUMSTANCE OR INFORMATION CAPABLE OF LEADING TO MEDICATION ERROR [None]
  - WRONG DRUG ADMINISTERED [None]
